FAERS Safety Report 4994947-5 (Version None)
Quarter: 2006Q2

REPORT INFORMATION
  Report Type: 
  Country: None (occurrence: None)
  Receive Date: 20060508
  Receipt Date: 20060426
  Transmission Date: 20061013
  Serious: Yes (Death)
  Sender: FDA-Public Use
  Company Number: US-BRISTOL-MYERS SQUIBB COMPANY-13358155

PATIENT
  Sex: Male
  Weight: 64 kg

DRUGS (3)
  1. LAC-HYDRIN [Suspect]
     Indication: PSORIASIS
     Route: 061
     Dates: start: 20040101, end: 20040101
  2. CARDIAC MEDICATIONS [Concomitant]
  3. ECOTRIN [Concomitant]

REACTIONS (1)
  - DEATH [None]
